FAERS Safety Report 20690235 (Version 2)
Quarter: 2022Q2

REPORT INFORMATION
  Report Type: Spontaneous
  Country: IN (occurrence: IN)
  Receive Date: 20220408
  Receipt Date: 20220421
  Transmission Date: 20220720
  Serious: Yes (Hospitalization, Other)
  Sender: FDA-Public Use
  Company Number: IN-NOVARTISPH-NVSC2022IN078942

PATIENT
  Age: 66 Year
  Sex: Male
  Weight: 65 kg

DRUGS (12)
  1. SIMULECT [Suspect]
     Active Substance: BASILIXIMAB
     Indication: Renal transplant
     Dosage: 20 MG
     Route: 065
     Dates: start: 20220317, end: 20220321
  2. CELLCEPT [Concomitant]
     Active Substance: MYCOPHENOLATE MOFETIL
     Indication: Product used for unknown indication
     Route: 065
  3. PREDNISOLONE [Concomitant]
     Active Substance: PREDNISOLONE
     Indication: Product used for unknown indication
     Dosage: 20 MG (8AM FOR 7 DAYS)
     Route: 065
  4. TACROLIMUS [Concomitant]
     Active Substance: TACROLIMUS
     Indication: Product used for unknown indication
     Dosage: 6.5 MG (8AM-8AM FOR 7 DAYS)
     Route: 065
  5. PROLOMET [Concomitant]
     Indication: Product used for unknown indication
     Dosage: 25 MG (1-0-1 FOR 7 DAYS)
     Route: 065
  6. LEVOTHYROXINE [Concomitant]
     Active Substance: LEVOTHYROXINE
     Indication: Product used for unknown indication
     Dosage: 75 MG (1-0-0, FOR 7 DAYS)
     Route: 065
  7. SEPTRAN [Concomitant]
     Indication: Product used for unknown indication
     Dosage: UNK (0-0-1 FOR 7 DAYS)
     Route: 065
  8. SHELCAL M [Concomitant]
     Indication: Product used for unknown indication
     Dosage: UNK (1-1-1 FOR 7 DAYS)
     Route: 065
  9. RANTAC-D [Concomitant]
     Indication: Product used for unknown indication
     Dosage: UNK (1-0-0 1/2 HR B/F FOR 7 DAYS)
     Route: 065
  10. MAGMAX [Concomitant]
     Indication: Product used for unknown indication
     Dosage: 400 MG (1-1-1 FOR 7 DAYS)
     Route: 065
  11. ACETAMINOPHEN [Concomitant]
     Active Substance: ACETAMINOPHEN
     Indication: Product used for unknown indication
     Dosage: 500 MG (1 SOS FOR 7 DAYS)
     Route: 065
  12. CHLORHEXIDINE [Concomitant]
     Active Substance: CHLORHEXIDINE
     Indication: Product used for unknown indication
     Dosage: UNK (TDS FOR 7 DAYS)
     Route: 065

REACTIONS (13)
  - Kidney transplant rejection [Unknown]
  - Tubulointerstitial nephritis [Unknown]
  - Atrial fibrillation [Unknown]
  - Glomerulosclerosis [Unknown]
  - Vasculitis [Unknown]
  - Capillaritis [Unknown]
  - Lymphocytic infiltration [Unknown]
  - Proteinuria [Unknown]
  - Blood creatinine increased [Unknown]
  - Hypertension [Unknown]
  - Pallor [Unknown]
  - Oedema peripheral [Unknown]
  - Arteriovenous fistula [Unknown]

NARRATIVE: CASE EVENT DATE: 20220329
